FAERS Safety Report 6746786-2 (Version None)
Quarter: 2010Q2

REPORT INFORMATION
  Report Type: 
  Country: None (occurrence: None)
  Receive Date: 20100528
  Receipt Date: 20100114
  Transmission Date: 20101027
  Serious: No
  Sender: FDA-Public Use
  Company Number: A0812783A

PATIENT
  Age: 60 Year
  Sex: Female

DRUGS (7)
  1. VENTOLIN [Suspect]
     Indication: ASTHMA
     Dosage: 2PUFF AS REQUIRED
     Route: 055
     Dates: start: 19880101
  2. FLOVENT [Suspect]
     Indication: ASTHMA
     Dosage: 1PUFF TWICE PER DAY
     Route: 055
  3. MENTHOL LOZENGE [Concomitant]
  4. DEXTROL [Concomitant]
  5. LEVOTHYROXINE SODIUM [Concomitant]
  6. FLOVENT [Concomitant]
  7. PRILOSEC [Concomitant]

REACTIONS (4)
  - COUGH [None]
  - NASOPHARYNGITIS [None]
  - PRODUCT QUALITY ISSUE [None]
  - WHEEZING [None]
